FAERS Safety Report 6637424-8 (Version None)
Quarter: 2010Q1

REPORT INFORMATION
  Report Type: 
  Country: None (occurrence: None)
  Receive Date: 20100311
  Receipt Date: 20100224
  Transmission Date: 20100710
  Serious: Yes (Life-Threatening, Hospitalization)
  Sender: FDA-Public Use
  Company Number: AMI0018477

PATIENT
  Age: 87 Year
  Sex: Female

DRUGS (11)
  1. TIMOLOL MALEATE [Suspect]
     Dosage: 046
  2. ROCURONIUM BROMIDE [Suspect]
     Indication: ANAESTHESIA
     Dosage: 40MG - ONE TIME DOSE
  3. FENTANYL [Concomitant]
  4. MIDAZOLAM HCL [Concomitant]
  5. PROPOFOL [Concomitant]
  6. SEVOFLURANE [Concomitant]
  7. PILOCARPINE HYDROCHLORIDE [Concomitant]
  8. HALOPERIDOL [Concomitant]
  9. OMEPRAZOLE [Concomitant]
  10. ATORVASTATIN CALCIUM [Concomitant]
  11. .. [Concomitant]

REACTIONS (2)
  - ANAESTHETIC COMPLICATION [None]
  - HYPERTENSIVE CRISIS [None]
